FAERS Safety Report 4643372-5 (Version None)
Quarter: 2005Q2

REPORT INFORMATION
  Report Type: 
  Country: None (occurrence: None)
  Receive Date: 20050421
  Receipt Date: 20050407
  Transmission Date: 20051028
  Serious: Yes (Other)
  Sender: FDA-Public Use
  Company Number: 2005057665

PATIENT
  Age: 88 Year
  Sex: Male
  Weight: 77.1115 kg

DRUGS (6)
  1. FELDENE [Suspect]
     Indication: OSTEOARTHRITIS
     Dosage: (1 IN 1 D)
     Dates: start: 20050101, end: 20050101
  2. IBUPROFEN [Suspect]
     Indication: OSTEOARTHRITIS
     Dosage: 3200 MG (800 MG, 4 IN 1 D), ORAL
     Route: 048
  3. ROFECOXIB [Suspect]
     Indication: ILL-DEFINED DISORDER
  4. OXYCODONE (OXYCODONE) [Concomitant]
  5. VERAPAMIL HCL [Concomitant]
  6. VERAPAMIL [Concomitant]

REACTIONS (3)
  - BODY HEIGHT DECREASED [None]
  - GASTROINTESTINAL HAEMORRHAGE [None]
  - THROMBOSIS [None]
